APPROVED DRUG PRODUCT: KETOROLAC TROMETHAMINE
Active Ingredient: KETOROLAC TROMETHAMINE
Strength: 30MG/ML
Dosage Form/Route: INJECTABLE;INJECTION
Application: A211445 | Product #001 | TE Code: AP
Applicant: NEPHRON PHARMACEUTICALS CORPORATION
Approved: Aug 20, 2020 | RLD: No | RS: No | Type: RX